FAERS Safety Report 9410558 (Version 1)
Quarter: 2013Q3

REPORT INFORMATION
  Report Type: Spontaneous
  Country: US (occurrence: None)
  Receive Date: 20130718
  Receipt Date: 20130718
  Transmission Date: 20140515
  Serious: Yes (Hospitalization)
  Sender: FDA-Public Use
  Company Number: None

PATIENT
  Age: 77 Year
  Sex: Male

DRUGS (14)
  1. BACLOFEN [Suspect]
     Route: 048
  2. GABAPENTIN [Suspect]
     Route: 048
  3. ACETAMINOPHEN [Concomitant]
  4. ALLOPURINOL [Concomitant]
  5. WARFARIN [Concomitant]
  6. ASPIRIN [Concomitant]
  7. AMIODARONE [Concomitant]
  8. METOPROLOL [Concomitant]
  9. ATORVASTATIN [Concomitant]
  10. TOVIAZ [Concomitant]
  11. PENTOXIFYLLINE [Concomitant]
  12. NEPHROCAPS [Concomitant]
  13. LOSARTAN [Concomitant]
  14. FOLIC ACID [Concomitant]

REACTIONS (2)
  - Encephalopathy [None]
  - Mental status changes [None]
